FAERS Safety Report 5645595-5 (Version None)
Quarter: 2008Q1

REPORT INFORMATION
  Report Type: 
  Country: None (occurrence: None)
  Receive Date: 20080229
  Receipt Date: 20080225
  Transmission Date: 20080703
  Serious: Yes (Hospitalization, Other)
  Sender: FDA-Public Use
  Company Number: FI-BRISTOL-MYERS SQUIBB COMPANY-14083539

PATIENT
  Age: 66 Year
  Sex: Female

DRUGS (15)
  1. SPRYCEL [Suspect]
     Indication: CHRONIC MYELOID LEUKAEMIA
     Dosage: INTERRUPTED-02AUG07,RESTARTD-08NOV07,140MG/D,INTERPTD-29NOV07,RESTARTD-10DEC07,DISCONTD-JAN08.
     Dates: start: 20060801, end: 20080101
  2. NEXIUM [Concomitant]
  3. ENOXAPARIN SODIUM [Concomitant]
  4. CARDACE [Concomitant]
  5. KALCIPOS-D [Concomitant]
  6. DUREKAL [Concomitant]
  7. FURESIS [Concomitant]
  8. PREDNISONE TAB [Concomitant]
  9. LAXOBERON [Concomitant]
  10. NOXAFIL [Concomitant]
  11. OXYCONTIN [Concomitant]
  12. COTRIM [Concomitant]
  13. ARANESP [Concomitant]
  14. NEUPOGEN [Concomitant]
     Dosage: 1 DOSAGE FORM= 300(UNITS NOT SPECIFIED)
  15. ZOPINOX [Concomitant]

REACTIONS (12)
  - BLOOD PRESSURE INCREASED [None]
  - CLOSTRIDIUM DIFFICILE COLITIS [None]
  - GASTRITIS [None]
  - MALIGNANT NEOPLASM PROGRESSION [None]
  - OESOPHAGITIS [None]
  - PANCYTOPENIA [None]
  - PULMONARY EMBOLISM [None]
  - PYELONEPHRITIS [None]
  - REVERSIBLE POSTERIOR LEUKOENCEPHALOPATHY SYNDROME [None]
  - SEPSIS [None]
  - SPLENIC INFARCTION [None]
  - SUBDIAPHRAGMATIC ABSCESS [None]
